FAERS Safety Report 7767248-X (Version None)
Quarter: 2011Q3

REPORT INFORMATION
  Report Type: 
  Country: None (occurrence: None)
  Receive Date: 20110922
  Receipt Date: 20110328
  Transmission Date: 20111222
  Serious: Yes (Other)
  Sender: FDA-Public Use
  Company Number: US-ASTRAZENECA-2011SE17599

PATIENT
  Age: 608 Month
  Sex: Female

DRUGS (12)
  1. SYNTHROID [Concomitant]
     Dosage: 75 MCG DAILY
     Dates: start: 20080526
  2. PROZAC [Concomitant]
     Dates: start: 20080526
  3. RISPERDAL [Concomitant]
     Dates: start: 20080526
  4. LOVASTATIN [Concomitant]
     Dates: start: 20080526
  5. DEPAKOTE [Concomitant]
     Dates: start: 20080526
  6. SERTRALINE HYDROCHLORIDE [Concomitant]
     Dates: start: 20061031
  7. DILANTIN [Concomitant]
     Dates: start: 20080526
  8. MIRTAZAPINE [Concomitant]
     Dates: start: 20061213
  9. HYDROXYCHLOROQUINE SULFATE [Concomitant]
     Dates: start: 20080526
  10. SEROQUEL [Suspect]
     Dosage: 100 MG TO 500 MG
     Route: 048
     Dates: start: 20061031
  11. CIMETIDINE [Concomitant]
     Dates: start: 20080526
  12. CLONAZEPAM [Concomitant]
     Dosage: 1 MG TO 4 MG
     Dates: start: 20061106

REACTIONS (7)
  - CONVULSION [None]
  - HYPERCHOLESTEROLAEMIA [None]
  - SYSTEMIC LUPUS ERYTHEMATOSUS [None]
  - HYPOTHYROIDISM [None]
  - ASTHMA [None]
  - CHEST PAIN [None]
  - PEPTIC ULCER [None]
